FAERS Safety Report 10203574 (Version 2)
Quarter: 2014Q2

REPORT INFORMATION
  Report Type: Spontaneous
  Country: US (occurrence: US)
  Receive Date: 20140529
  Receipt Date: 20140529
  Transmission Date: 20141212
  Serious: No
  Sender: FDA-Public Use
  Company Number: US-MYLANLABS-2013S1016301

PATIENT
  Age: 65 Year
  Sex: Female

DRUGS (4)
  1. ZOLPIDEM TARTRATE TABLETS [Suspect]
     Indication: INSOMNIA
     Dates: end: 2013
  2. ZOLPIDEM TARTRATE TABLETS [Suspect]
     Indication: INSOMNIA
     Dates: end: 2013
  3. SYNTHROID [Concomitant]
  4. CELEXA [Concomitant]

REACTIONS (3)
  - Drug effect decreased [Recovered/Resolved]
  - Insomnia [Recovered/Resolved]
  - Insomnia [Recovered/Resolved]
